FAERS Safety Report 22591221 (Version 1)
Quarter: 2023Q2

REPORT INFORMATION
  Report Type: Spontaneous
  Country: US (occurrence: US)
  Receive Date: 20230612
  Receipt Date: 20230612
  Transmission Date: 20230721
  Serious: Yes (Life-Threatening, Other)
  Sender: FDA-Public Use
  Company Number: US-PURDUE PHARMA-USA-2023-0302670

PATIENT
  Sex: Male
  Weight: 72.562 kg

DRUGS (2)
  1. OXYCONTIN [Suspect]
     Active Substance: OXYCODONE HYDROCHLORIDE
     Indication: Pain
     Dosage: 40 MILLIGRAM AS MANY AS HE WANTS
     Route: 048
     Dates: start: 2016
  2. OXYCONTIN [Suspect]
     Active Substance: OXYCODONE HYDROCHLORIDE
     Dosage: 80 MILLIGRAM UNKNOWN
     Route: 048
     Dates: start: 2016

REACTIONS (5)
  - Mental disorder [Recovered/Resolved]
  - Illness [Recovered/Resolved]
  - Self-medication [Recovered/Resolved]
  - Drug dependence [Recovered/Resolved]
  - Unevaluable event [Unknown]

NARRATIVE: CASE EVENT DATE: 20160101
